FAERS Safety Report 20714422 (Version 1)
Quarter: 2022Q2

REPORT INFORMATION
  Report Type: Spontaneous
  Country: AT (occurrence: AT)
  Receive Date: 20220415
  Receipt Date: 20220415
  Transmission Date: 20220721
  Serious: Yes (Other)
  Sender: FDA-Public Use
  Company Number: AT-BRISTOL-MYERS SQUIBB COMPANY-BMS-2022-035035

PATIENT
  Age: 62 Year
  Sex: Male

DRUGS (3)
  1. GEMCITABINE [Suspect]
     Active Substance: GEMCITABINE
     Indication: Bladder transitional cell carcinoma
     Dosage: UNK (75 PERCENT GEMCITABINE DOSE FOR CYCLE 3)
     Route: 065
     Dates: end: 20210806
  2. PACLITAXEL [Suspect]
     Active Substance: PACLITAXEL
     Indication: Bladder transitional cell carcinoma
     Dosage: UNK
     Route: 065
     Dates: start: 20210411, end: 20210802
  3. PACLITAXEL [Suspect]
     Active Substance: PACLITAXEL
     Dosage: UNK
     Route: 065
     Dates: end: 20210806

REACTIONS (4)
  - Malignant neoplasm progression [Unknown]
  - Pancytopenia [Unknown]
  - Alopecia [Unknown]
  - Asthenia [Unknown]
